FAERS Safety Report 5480156-2 (Version None)
Quarter: 2007Q4

REPORT INFORMATION
  Report Type: 
  Country: None (occurrence: None)
  Receive Date: 20071003
  Receipt Date: 20071003
  Transmission Date: 20080405
  Serious: Yes (Hospitalization)
  Sender: FDA-Public Use
  Company Number: None

PATIENT
  Sex: Female
  Weight: 97.5 kg

DRUGS (6)
  1. CETUXIMAB [Suspect]
     Indication: BREAST CANCER METASTATIC
     Dosage: LOADING DOSE 400MG/M2 IV
     Route: 042
     Dates: start: 20070814
  2. CARBOPLATIN [Suspect]
     Indication: BREAST CANCER METASTATIC
     Dosage: AUC 2 IV
     Route: 042
     Dates: start: 20070814
  3. VICODIN [Concomitant]
  4. ZOFRAN [Concomitant]
  5. CENTRUM SILVER [Concomitant]
  6. ALEVE [Concomitant]

REACTIONS (2)
  - DYSPNOEA [None]
  - HYPOXIA [None]
